FAERS Safety Report 11103622 (Version 1)
Quarter: 2015Q2

REPORT INFORMATION
  Report Type: Spontaneous
  Country: US (occurrence: US)
  Receive Date: 20150511
  Receipt Date: 20150511
  Transmission Date: 20150821
  Serious: No
  Sender: FDA-Public Use
  Company Number: US-PFIZER INC-2015143564

PATIENT
  Age: 37 Year

DRUGS (7)
  1. MOBIC [Suspect]
     Active Substance: MELOXICAM
     Indication: SACROILIITIS
  2. TRAMADOL HCL [Suspect]
     Active Substance: TRAMADOL HYDROCHLORIDE
     Indication: PAIN
     Dosage: 50 MG, AT 2 TABLETS 3-4 TIMES DAILY AS NEEDED
     Route: 048
     Dates: start: 20130826
  3. TRAMADOL HCL [Suspect]
     Active Substance: TRAMADOL HYDROCHLORIDE
     Indication: SACROILIITIS
  4. MOBIC [Suspect]
     Active Substance: MELOXICAM
     Indication: INFLAMMATION
     Dosage: UNK, (15MG, 1/2 -1 TAB BY MOUTH ONCE DAILY)
     Route: 048
     Dates: start: 20130826
  5. CYCLOBENZAPRINE HCL [Suspect]
     Active Substance: CYCLOBENZAPRINE HYDROCHLORIDE
     Indication: SACROILIITIS
     Dosage: UNK, AS NEEDED (10MG, TAKE 1/2 TO 1 TABLET AT BEDTIME AND UP TO 3 TIMES DAILY AS NEEDED)
     Route: 048
     Dates: start: 20130826
  6. IBUPROFEN. [Suspect]
     Active Substance: IBUPROFEN
     Dosage: 200 MG, 4X/DAY (EVERY 6 HOURS DAILY)
     Route: 048
     Dates: start: 20130826
  7. BUTALBITAL, ACETAMINOPHEN, AND CAFFEINE [Suspect]
     Active Substance: ACETAMINOPHEN\BUTALBITAL\CAFFEINE
     Indication: HEADACHE
     Dosage: BUTALBITAL 50MG/ PARACETAMOL 325MG/ CAFFEINE 40MG, UNK (TAKE 1 OR 2 TABLETS EVERY 4 HOURS AS NEEDED)
     Route: 048

REACTIONS (3)
  - Anxiety [Unknown]
  - Hypertension [Unknown]
  - Pain [Unknown]
